FAERS Safety Report 8848042 (Version 1)
Quarter: 2012Q4

REPORT INFORMATION
  Report Type: 
  Country: US (occurrence: US)
  Receive Date: 20121018
  Receipt Date: 20121018
  Transmission Date: 20130627
  Serious: Yes (Hospitalization, Other)
  Sender: FDA-Public Use
  Company Number: US-ELI_LILLY_AND_COMPANY-US201210002637

PATIENT
  Age: 48 None
  Sex: Male

DRUGS (3)
  1. HUMALOG 25% LISPRO, 75% NPL [Suspect]
     Indication: DIABETES MELLITUS
     Dosage: UNK, prn
     Dates: start: 201201
  2. HUMALOG 25% LISPRO, 75% NPL [Suspect]
     Dosage: UNK, prn
     Route: 058
  3. LOSARTAN/HYDROCHLOORTHIAZIDE [Concomitant]

REACTIONS (4)
  - Cardiac operation [Unknown]
  - Surgery [Unknown]
  - Drug ineffective [Not Recovered/Not Resolved]
  - Blood glucose increased [Not Recovered/Not Resolved]
